FAERS Safety Report 25944022 (Version 1)
Quarter: 2025Q4

REPORT INFORMATION
  Report Type: Spontaneous
  Country: AU (occurrence: AU)
  Receive Date: 20251021
  Receipt Date: 20251021
  Transmission Date: 20260118
  Serious: Yes (Other)
  Sender: NOVARTIS
  Company Number: AU-002147023-NVSC2025AU162034

PATIENT
  Age: 72 Year
  Sex: Female

DRUGS (2)
  1. GLIVEC [Suspect]
     Active Substance: IMATINIB MESYLATE
     Indication: Chronic myeloid leukaemia
     Dosage: 800 MG (ABOUT 6 MONTHS)
     Route: 065
  2. GLIVEC [Suspect]
     Active Substance: IMATINIB MESYLATE
     Dosage: 400 MG
     Route: 065
     Dates: end: 2020

REACTIONS (7)
  - Breast cancer [Unknown]
  - Muscle spasms [Unknown]
  - Fatigue [Unknown]
  - Mouth ulceration [Unknown]
  - Back pain [Unknown]
  - Alopecia [Unknown]
  - Insomnia [Unknown]
